FAERS Safety Report 6425075-X (Version None)
Quarter: 2009Q4

REPORT INFORMATION
  Report Type: 
  Country: None (occurrence: None)
  Receive Date: 20091103
  Receipt Date: 20091022
  Transmission Date: 20100525
  Serious: Yes (Other)
  Sender: FDA-Public Use
  Company Number: DE-PFIZER INC-2009286834

PATIENT
  Sex: Female

DRUGS (2)
  1. SUTENT [Suspect]
  2. TRAMADOL HYDROCHLORIDE [Concomitant]

REACTIONS (2)
  - HEART RATE INCREASED [None]
  - PAIN [None]
